FAERS Safety Report 5443611-7 (Version None)
Quarter: 2007Q3

REPORT INFORMATION
  Report Type: 
  Country: None (occurrence: None)
  Receive Date: 20070831
  Receipt Date: 20070815
  Transmission Date: 20080115
  Serious: Yes (Death, Hospitalization)
  Sender: FDA-Public Use
  Company Number: 13878129

PATIENT
  Age: 64 Year
  Sex: Male

DRUGS (3)
  1. FLUOROURACIL [Suspect]
     Indication: COLON CANCER
     Dosage: 5600 MILLIGRAM IV
     Route: 042
     Dates: start: 20070612, end: 20070614
  2. LEUCOVORIN CALCIUM [Suspect]
     Indication: COLON CANCER
     Dosage: 800 MILLIGRAM IV
     Route: 042
     Dates: start: 20070612, end: 20070612
  3. OXALIPLATIN [Suspect]
     Indication: COLON CANCER
     Dosage: 185 MILLIGRAM IV
     Route: 042
     Dates: start: 20070612, end: 20070612

REACTIONS (10)
  - ACUTE RESPIRATORY DISTRESS SYNDROME [None]
  - COLON CANCER METASTATIC [None]
  - DIFFUSE ALVEOLAR DAMAGE [None]
  - DYSPNOEA [None]
  - EYE INJURY [None]
  - EYE PENETRATION [None]
  - FALL [None]
  - PNEUMONIA [None]
  - PULMONARY FIBROSIS [None]
  - RESPIRATORY FAILURE [None]
